FAERS Safety Report 9453012 (Version 1)
Quarter: 2013Q3

REPORT INFORMATION
  Report Type: Spontaneous
  Country: BR (occurrence: BR)
  Receive Date: 20130812
  Receipt Date: 20130812
  Transmission Date: 20140515
  Serious: Yes (Other)
  Sender: FDA-Public Use
  Company Number: BR-SANOFI-AVENTIS-2013SA079187

PATIENT
  Age: 23 Year
  Sex: Female
  Weight: 53 kg

DRUGS (5)
  1. LANTUS [Suspect]
     Indication: TYPE 1 DIABETES MELLITUS
     Route: 058
     Dates: start: 2006
  2. DORZOLAMIDE HYDROCHLORIDE/TIMOLOL MALEATE [Concomitant]
     Indication: EYE DISORDER
     Dosage: EYEWASH; OCULAR (LEFT EYE)
     Dates: start: 2001
  3. NAPHAZOLINE NITRATE/ZINC SULFATE [Concomitant]
     Indication: EYE DISORDER
     Dosage: EYEWASH; OCULAR (LEFT EYE)
     Dates: start: 2011
  4. LOSARTAN [Concomitant]
     Indication: HYPERTENSION
     Dosage: STRENGTH: 50 MG
     Route: 048
     Dates: start: 2011
  5. NOVORAPID [Concomitant]
     Indication: TYPE 1 DIABETES MELLITUS
     Route: 058
     Dates: start: 2006

REACTIONS (2)
  - Eye haemorrhage [Not Recovered/Not Resolved]
  - Visual impairment [Not Recovered/Not Resolved]
